FAERS Safety Report 6634652-2 (Version None)
Quarter: 2010Q1

REPORT INFORMATION
  Report Type: 
  Country: None (occurrence: None)
  Receive Date: 20100315
  Receipt Date: 20100305
  Transmission Date: 20100710
  Serious: Yes (Other)
  Sender: FDA-Public Use
  Company Number: B0638920A

PATIENT
  Sex: Female
  Weight: 80 kg

DRUGS (12)
  1. LAPATINIB [Suspect]
     Indication: BREAST CANCER
     Dosage: 1000MG PER DAY
     Route: 048
     Dates: start: 20100121
  2. TRASTUZUMAB [Suspect]
     Indication: BREAST CANCER
     Dosage: 2MGK WEEKLY
     Route: 042
     Dates: start: 20100121
  3. PACLITAXEL [Suspect]
     Indication: BREAST CANCER
     Dosage: 80MGM2 WEEKLY
     Route: 042
     Dates: start: 20100121
  4. ALDACTONE [Concomitant]
     Dosage: 100MG PER DAY
     Route: 048
  5. OMEPRAZOLE [Concomitant]
     Dosage: 20MG PER DAY
     Route: 048
  6. CYMBALTA [Concomitant]
     Indication: DEPRESSION
     Dosage: 60MG PER DAY
     Route: 048
  7. MYOLASTAN [Concomitant]
     Indication: FIBROMYALGIA
     Dosage: 50MG PER DAY
     Route: 048
  8. MECHLORAL [Concomitant]
     Indication: PREMEDICATION
     Dosage: 32MG TWICE PER DAY
     Route: 048
  9. UNKNOWN DRUG [Concomitant]
     Indication: HEADACHE
     Dosage: 20MG PER DAY
     Route: 048
  10. URFADYN [Concomitant]
     Dosage: 100MG PER DAY
     Route: 048
  11. UNI-TRANXENE [Concomitant]
     Indication: ANXIETY
     Dosage: 15MG PER DAY
     Route: 048
  12. UNKNOWN DRUG [Concomitant]
     Indication: SLEEP DISORDER
     Dosage: 2.5MG PER DAY
     Route: 048

REACTIONS (2)
  - PULMONARY EMBOLISM [None]
  - TACHYCARDIA [None]
